FAERS Safety Report 11591215 (Version 1)
Quarter: 2015Q4

REPORT INFORMATION
  Report Type: Spontaneous
  Country: KR (occurrence: KR)
  Receive Date: 20151004
  Receipt Date: 20151004
  Transmission Date: 20160304
  Serious: Yes (Other)
  Sender: FDA-Public Use
  Company Number: KR-TEVA-597899ISR

PATIENT
  Age: 24 Year
  Sex: Female

DRUGS (3)
  1. CISPLATIN. [Suspect]
     Active Substance: CISPLATIN
     Indication: OSTEOSARCOMA
     Dosage: 120 MG/M2 ON DAY 1
     Route: 013
  2. DOXORUBICIN [Concomitant]
     Active Substance: DOXORUBICIN
     Indication: OSTEOSARCOMA
     Dosage: 25 MG/M2/24 HOURS FOR 3 CONSECUTIVE DAYS
     Route: 042
  3. CISPLATIN. [Suspect]
     Active Substance: CISPLATIN
     Indication: OSTEOSARCOMA
     Dosage: 120 MG/M2 ON DAY 1
     Route: 042

REACTIONS (2)
  - Invasive papillary breast carcinoma [Unknown]
  - Mucinous breast carcinoma [Unknown]
